FAERS Safety Report 17220625 (Version 1)
Quarter: 2019Q4

REPORT INFORMATION
  Report Type: Spontaneous
  Country: CN (occurrence: CN)
  Receive Date: 20191231
  Receipt Date: 20191231
  Transmission Date: 20200122
  Serious: Yes (Other)
  Sender: FDA-Public Use
  Company Number: CN-SHIRE-CN201944850

PATIENT

DRUGS (11)
  1. HUMAN ALBUMIN [Suspect]
     Active Substance: ALBUMIN HUMAN
     Indication: INTRACRANIAL PRESSURE INCREASED
     Dosage: 10 GRAM, 2X/DAY:BID
     Route: 042
     Dates: start: 20191205, end: 20191214
  2. LEVETIRACETAM. [Suspect]
     Active Substance: LEVETIRACETAM
     Indication: PROPHYLAXIS
     Dosage: 0.5 GRAM, 2X/DAY:BID
     Route: 048
     Dates: start: 20191204, end: 20191219
  3. AMLODIPINE BESYLATE. [Suspect]
     Active Substance: AMLODIPINE BESYLATE
     Indication: PRODUCT USED FOR UNKNOWN INDICATION
     Route: 065
  4. TROPISETRON HYDROCHLORIDE [Suspect]
     Active Substance: TROPISETRON HYDROCHLORIDE
     Indication: PROPHYLAXIS
     Dosage: 5 MILLIGRAM, 1X/DAY:QD
     Route: 042
     Dates: start: 20191203, end: 20191211
  5. CALCIUM GLUCONATE. [Concomitant]
     Active Substance: CALCIUM GLUCONATE
     Indication: PRODUCT USED FOR UNKNOWN INDICATION
  6. SODIUM CHLORIDE. [Concomitant]
     Active Substance: SODIUM CHLORIDE
     Indication: MENSTRUAL CYCLE MANAGEMENT
  7. FUROSEMIDE. [Suspect]
     Active Substance: FUROSEMIDE
     Indication: POLYURIA
     Dosage: 20 MILLIGRAM, 2X/DAY:BID
     Route: 042
     Dates: start: 20191205, end: 20191214
  8. AMBROXOL HYDROCHLORIDE [Suspect]
     Active Substance: AMBROXOL HYDROCHLORIDE
     Indication: PRODUCT USED FOR UNKNOWN INDICATION
     Dosage: UNK
     Route: 065
     Dates: start: 20191203, end: 20191214
  9. ETIMICIN SULFATE [Suspect]
     Active Substance: ETIMICIN SULFATE
     Indication: PRODUCT USED FOR UNKNOWN INDICATION
     Route: 065
  10. MANNITOL. [Suspect]
     Active Substance: MANNITOL
     Indication: INTRACRANIAL PRESSURE INCREASED
     Dosage: 20 GRAM, 3X/DAY:TID
     Route: 042
     Dates: start: 20191204, end: 20191214
  11. ETIMICIN [Concomitant]
     Active Substance: ETIMICIN SULFATE
     Indication: PRODUCT USED FOR UNKNOWN INDICATION

REACTIONS (3)
  - Infusion related reaction [Unknown]
  - Rash [Recovered/Resolved]
  - Pruritus [Recovered/Resolved]

NARRATIVE: CASE EVENT DATE: 20191206
